FAERS Safety Report 15206948 (Version 1)
Quarter: 2018Q3

REPORT INFORMATION
  Report Type: Spontaneous
  Country: US (occurrence: US)
  Receive Date: 20180727
  Receipt Date: 20180727
  Transmission Date: 20181010
  Serious: Yes (Hospitalization, Other)
  Sender: FDA-Public Use
  Company Number: US-REGENERON PHARMACEUTICALS, INC.-2018-30651

PATIENT

DRUGS (2)
  1. EYLEA [Suspect]
     Active Substance: AFLIBERCEPT
     Dosage: LAST DOSE PRIOR TO EVENTS
     Dates: start: 20171227, end: 20171227
  2. EYLEA [Suspect]
     Active Substance: AFLIBERCEPT
     Indication: NEOVASCULAR AGE-RELATED MACULAR DEGENERATION
     Dosage: UNK

REACTIONS (8)
  - Cataract [Recovered/Resolved]
  - Fall [Recovered/Resolved]
  - Wrong technique in product usage process [Recovered/Resolved]
  - Endophthalmitis [Recovered/Resolved]
  - Cachexia [Recovered/Resolved]
  - Product leakage [Recovered/Resolved]
  - Vitrectomy [Recovered/Resolved]
  - Limb injury [Recovered/Resolved]

NARRATIVE: CASE EVENT DATE: 20171227
